FAERS Safety Report 6310161-5 (Version None)
Quarter: 2009Q3

REPORT INFORMATION
  Report Type: 
  Country: None (occurrence: None)
  Receive Date: 20090811
  Receipt Date: 20090728
  Transmission Date: 20100115
  Serious: Yes (Death)
  Sender: FDA-Public Use
  Company Number: KV200800115

PATIENT
  Sex: Female

DRUGS (1)
  1. MORPHINE SULFATE [Suspect]
     Indication: CANCER PAIN
     Dosage: ORAL
     Route: 048
     Dates: start: 20080201

REACTIONS (2)
  - CERVIX CARCINOMA [None]
  - PRODUCT QUALITY ISSUE [None]
